FAERS Safety Report 10550425 (Version 1)
Quarter: 2014Q4

REPORT INFORMATION
  Report Type: Spontaneous
  Country: US (occurrence: US)
  Receive Date: 20141029
  Receipt Date: 20141029
  Transmission Date: 20150529
  Serious: No
  Sender: FDA-Public Use
  Company Number: US-TEVA-452914USA

PATIENT
  Sex: Female

DRUGS (2)
  1. XYREM [Suspect]
     Active Substance: SODIUM OXYBATE
  2. PROVIGIL [Suspect]
     Active Substance: MODAFINIL
     Route: 055

REACTIONS (2)
  - Nausea [Unknown]
  - Weight decreased [Unknown]
